FAERS Safety Report 24878915 (Version 1)
Quarter: 2025Q1

REPORT INFORMATION
  Report Type: Spontaneous
  Country: US (occurrence: US)
  Receive Date: 20250123
  Receipt Date: 20250123
  Transmission Date: 20250408
  Serious: No
  Sender: CATALYST PHARMA
  Company Number: US-CATALYST PHARMACEUTICALS, INC-US-CATA-23-00403

PATIENT
  Age: 67 Year
  Sex: Female

DRUGS (3)
  1. FIRDAPSE [Suspect]
     Active Substance: AMIFAMPRIDINE PHOSPHATE
     Indication: Myasthenic syndrome
     Dosage: HALF TABLET, TWICE A DAY FOR 5 DAYS, INCREASED BY HALF TABLET EVERY 4-5 DAYS UNTIL THE MAX DOSE OF 8
     Route: 048
     Dates: start: 20190716, end: 2019
  2. FIRDAPSE [Suspect]
     Active Substance: AMIFAMPRIDINE PHOSPHATE
     Dosage: 1-2 TABLETS, EVERY 4 HOURS WITH A MAX OF 8 TABLETS DAILY
     Route: 048
     Dates: start: 20190912
  3. FIRDAPSE [Suspect]
     Active Substance: AMIFAMPRIDINE PHOSPHATE
     Dosage: 8 OR 6 PILLS A DAY
     Route: 065

REACTIONS (1)
  - Bronchitis chronic [Not Recovered/Not Resolved]

NARRATIVE: CASE EVENT DATE: 20230701
